FAERS Safety Report 4883451-0 (Version None)
Quarter: 2006Q1

REPORT INFORMATION
  Report Type: 
  Country: None (occurrence: None)
  Receive Date: 20060118
  Receipt Date: 20051005
  Transmission Date: 20060701
  Serious: Yes (Hospitalization)
  Sender: FDA-Public Use
  Company Number: US-MERCK-0510USA04304

PATIENT
  Age: 50 Year
  Sex: Male
  Weight: 93 kg

DRUGS (8)
  1. ACETAMINOPHEN AND HYDROCODONE BITARTRATE [Concomitant]
     Route: 065
  2. ULTRACET [Concomitant]
     Route: 065
  3. UNITHROID [Concomitant]
     Route: 065
  4. [THERAPY UNSPECIFIED] [Concomitant]
     Route: 065
  5. FLUOXETINE [Concomitant]
     Route: 065
  6. DOXEPIN HYDROCHLORIDE [Concomitant]
     Route: 065
  7. AMOXICILLIN [Concomitant]
     Route: 065
  8. VIOXX [Suspect]
     Indication: ARTHRITIS
     Route: 048
     Dates: start: 20010307, end: 20040901

REACTIONS (5)
  - ARTERIAL OCCLUSIVE DISEASE [None]
  - BACK PAIN [None]
  - NECK PAIN [None]
  - NEPHROLITHIASIS [None]
  - UPPER LIMB FRACTURE [None]
